FAERS Safety Report 11258071 (Version 1)
Quarter: 2015Q3

REPORT INFORMATION
  Report Type: Spontaneous
  Country: FR (occurrence: FR)
  Receive Date: 20150710
  Receipt Date: 20150710
  Transmission Date: 20151125
  Serious: Yes (Other)
  Sender: FDA-Public Use
  Company Number: FR-ASTRAZENECA-2015SE66598

PATIENT
  Age: 80 Year
  Sex: Female

DRUGS (4)
  1. XEPLION [Concomitant]
     Active Substance: PALIPERIDONE PALMITATE
  2. XEROQUEL [Suspect]
     Active Substance: QUETIAPINE FUMARATE
     Indication: SCHIZOPHRENIA
     Route: 048
     Dates: start: 20150323, end: 201505
  3. PREVISCAN [Concomitant]
     Active Substance: FLUINDIONE
  4. KARDEGIC [Concomitant]
     Active Substance: ASPIRIN LYSINE

REACTIONS (5)
  - Anaemia [Not Recovered/Not Resolved]
  - Dyspnoea [Not Recovered/Not Resolved]
  - Lymphopenia [Not Recovered/Not Resolved]
  - Off label use [Recovered/Resolved]
  - Cardiac failure [Not Recovered/Not Resolved]

NARRATIVE: CASE EVENT DATE: 20150323
